FAERS Safety Report 9464213 (Version 3)
Quarter: 2013Q3

REPORT INFORMATION
  Report Type: Spontaneous
  Country: US (occurrence: US)
  Receive Date: 20130819
  Receipt Date: 20130912
  Transmission Date: 20140515
  Serious: No
  Sender: FDA-Public Use
  Company Number: US-VERTEX PHARMACEUTICALS INC-2013-008855

PATIENT
  Age: 7 Year
  Sex: Female
  Weight: 26 kg

DRUGS (4)
  1. KALYDECO [Suspect]
     Indication: CYSTIC FIBROSIS
     Dosage: 150 MG, BID
     Route: 048
     Dates: start: 20120131
  2. CREON [Concomitant]
  3. ALBUTEROL [Concomitant]
  4. HYPERSAL [Concomitant]

REACTIONS (2)
  - Sleep terror [Unknown]
  - Nasal oedema [Unknown]
